FAERS Safety Report 14313600 (Version 1)
Quarter: 2017Q4

REPORT INFORMATION
  Report Type: Report from Study
  Country: US (occurrence: US)
  Receive Date: 20171221
  Receipt Date: 20171221
  Transmission Date: 20180321
  Serious: Yes (Other)
  Sender: FDA-Public Use
  Company Number: US-CIPLA LTD.-2017US26601

PATIENT

DRUGS (4)
  1. OLAPARIB. [Suspect]
     Active Substance: OLAPARIB
     Dosage: 100-400 MG EVERY 12 HRS IN EITHER CAPSULE OR TABLET FORMULATION
     Route: 048
  2. OLAPARIB. [Suspect]
     Active Substance: OLAPARIB
     Dosage: UNK, SINGLE AGENT MAINTENANCE THERAPY
     Route: 065
  3. CARBOPLATIN. [Suspect]
     Active Substance: CARBOPLATIN
     Dosage: UNK, AUC 3-5
     Route: 042
  4. OLAPARIB. [Suspect]
     Active Substance: OLAPARIB
     Dosage: 100-4000-400F
     Route: 065

REACTIONS (1)
  - Disease progression [Unknown]
